FAERS Safety Report 10027557 (Version 2)
Quarter: 2014Q1

REPORT INFORMATION
  Report Type: Spontaneous
  Country: US (occurrence: None)
  Receive Date: 20140218
  Receipt Date: 20140218
  Transmission Date: 20141002
  Serious: Yes (Other)
  Sender: FDA-Public Use
  Company Number: US-RRD-14-00008

PATIENT
  Age: 23 Year
  Sex: Male

DRUGS (6)
  1. TRANXENE [Suspect]
     Indication: EPILEPSY
     Dosage: 60MG (15MG 07,00H; 15MG 14,00H; 30MG 22,00H) ORAL
     Route: 048
     Dates: start: 2007, end: 201401
  2. TRANXENE [Suspect]
     Indication: EPILEPSY
     Dosage: 60MG (15MG,15MG 07:00H; 15MG 14:00H; 30MG 22:00HR), ORAL
     Route: 048
     Dates: start: 20140107, end: 20140121
  3. CARBATROL (CARBAMAZEPINE) (CAPSULES) (CARBAMAZEPINE) [Concomitant]
  4. ZONEGRAN (ZONISAMIDE) (ZONISAMIDE) [Concomitant]
  5. LORAZEPAM (LORAZEPAM) (TABLETS) (LORAZEPAM) [Concomitant]
  6. DIAZEPAM (DIAZEPAM) (DIAZEPAM) [Concomitant]

REACTIONS (2)
  - Aura [None]
  - Product substitution issue [None]
